FAERS Safety Report 21930927 (Version 1)
Quarter: 2023Q1

REPORT INFORMATION
  Report Type: Spontaneous
  Country: US (occurrence: None)
  Receive Date: 20230130
  Receipt Date: 20230130
  Transmission Date: 20230418
  Serious: Yes (Other)
  Sender: FDA-Public Use
  Company Number: None

PATIENT
  Age: 65 Year
  Sex: Female

DRUGS (1)
  1. LENALIDOMIDE [Suspect]
     Active Substance: LENALIDOMIDE
     Dosage: 25MG OTHER ORAL
     Route: 048
     Dates: start: 20220921

REACTIONS (4)
  - Plasma cell myeloma [None]
  - Diarrhoea [None]
  - Hypoaesthesia [None]
  - Thrombosis [None]

NARRATIVE: CASE EVENT DATE: 20221201
